FAERS Safety Report 14837993 (Version 1)
Quarter: 2018Q2

REPORT INFORMATION
  Report Type: Other
  Country: FR (occurrence: FR)
  Receive Date: 20180502
  Receipt Date: 20180502
  Transmission Date: 20180711
  Serious: Yes (Other)
  Sender: FDA-Public Use
  Company Number: FR-DENTSPLY-2018SCDP000068

PATIENT
  Age: 56 Year
  Sex: Female

DRUGS (1)
  1. 2% LIDOCAINE HCL INJECTION WITH EPINEPHRINE 1-100,000 [Suspect]
     Active Substance: EPINEPHRINE\LIDOCAINE HYDROCHLORIDE
     Indication: CYST REMOVAL
     Dosage: UNK
     Dates: start: 20180327, end: 20180327

REACTIONS (1)
  - Facial paralysis [None]

NARRATIVE: CASE EVENT DATE: 20180328
